FAERS Safety Report 8447918-0 (Version None)
Quarter: 2012Q2

REPORT INFORMATION
  Report Type: 
  Country: None (occurrence: None)
  Receive Date: 20120619
  Receipt Date: 20120611
  Transmission Date: 20120825
  Serious: Yes (Disabling)
  Sender: FDA-Public Use
  Company Number: PHEH2011US009266

PATIENT
  Sex: Female

DRUGS (15)
  1. PROZAC [Concomitant]
     Dosage: 20 MG, UNK
  2. VALIUM [Concomitant]
     Dosage: UNK UKN, UNK
  3. ZOFRAN [Concomitant]
     Dosage: UNK UKN, UNK
  4. IBUPROFEN [Concomitant]
     Dosage: UNK UKN, UNK
  5. SOLU-MEDROL [Concomitant]
     Dosage: UNK UKN, UNK
  6. LOMOTIL [Concomitant]
     Dosage: UNK UKN, UNK
  7. ASCORBIC ACID [Concomitant]
     Dosage: UNK UKN, UNK
  8. PHENERGAN [Concomitant]
     Dosage: UNK UKN, UNK
  9. NICODERM [Suspect]
     Dosage: UNK UKN, UNK
     Route: 062
  10. PROPRANOLOL [Concomitant]
     Dosage: 60 MG, UNK
  11. NEURONTIN [Suspect]
     Indication: PAIN
     Dosage: 300 MG, TID
     Dates: start: 20111201
  12. PERCOCET [Concomitant]
     Dosage: UNK UKN, UNK
  13. GILENYA [Suspect]
     Indication: MULTIPLE SCLEROSIS
     Dosage: 0.5 MG, QD
     Route: 048
     Dates: start: 20111114
  14. ZANTAC [Concomitant]
     Dosage: UNK UKN, UNK
  15. TALWIN [Concomitant]
     Dosage: UNK UKN, UNK

REACTIONS (10)
  - RED BLOOD CELL COUNT INCREASED [None]
  - UPPER RESPIRATORY TRACT INFECTION [None]
  - APPLICATION SITE SWELLING [None]
  - NAUSEA [None]
  - GAIT DISTURBANCE [None]
  - APPLICATION SITE PRURITUS [None]
  - NASOPHARYNGITIS [None]
  - VOMITING [None]
  - STARING [None]
  - LYMPHOCYTE COUNT DECREASED [None]
